FAERS Safety Report 21253201 (Version 1)
Quarter: 2022Q3

REPORT INFORMATION
  Report Type: Report from Study
  Country: AR (occurrence: AR)
  Receive Date: 20220825
  Receipt Date: 20220825
  Transmission Date: 20221027
  Serious: Yes (Life-Threatening, Hospitalization, Other)
  Sender: FDA-Public Use
  Company Number: AR-NOVARTISPH-NVSC2022AR190084

PATIENT
  Age: 56 Year
  Sex: Male

DRUGS (2)
  1. ENTRESTO [Suspect]
     Active Substance: SACUBITRIL\VALSARTAN
     Indication: Cardiac failure
     Dosage: 100 MG
     Route: 065
     Dates: start: 202007
  2. ENTRESTO [Suspect]
     Active Substance: SACUBITRIL\VALSARTAN
     Indication: Viral myocarditis
     Dosage: 2 DOSAGE FORM (200 MG), QD
     Route: 065
     Dates: start: 202106

REACTIONS (5)
  - COVID-19 [Unknown]
  - Acute pulmonary oedema [Unknown]
  - Cardiac failure [Unknown]
  - Blindness [Unknown]
  - Viral infection [Unknown]

NARRATIVE: CASE EVENT DATE: 20220628
